FAERS Safety Report 12181597 (Version 1)
Quarter: 2016Q1

REPORT INFORMATION
  Report Type: Spontaneous
  Country: US (occurrence: US)
  Receive Date: 20160315
  Receipt Date: 20160315
  Transmission Date: 20160526
  Serious: No
  Sender: FDA-Public Use
  Company Number: US-IMPAX LABORATORIES, INC-2015-IPXL-00255

PATIENT
  Age: 14 Year
  Sex: Male
  Weight: 79.4 kg

DRUGS (3)
  1. LORATADINE AND PSEUDOEPHEDRINE SULFATE (OTC) [Suspect]
     Active Substance: LORATADINE\PSEUDOEPHEDRINE SULFATE
     Indication: ACCIDENTAL EXPOSURE TO PRODUCT
     Dosage: TWO TABLETS, SINGLE DOSE
     Route: 048
     Dates: start: 20150226, end: 20150226
  2. PROMETHAZINE [Concomitant]
     Active Substance: PROMETHAZINE\PROMETHAZINE HYDROCHLORIDE
     Indication: COUGH
     Dosage: UNK
     Route: 065
     Dates: start: 20150226
  3. MUCINEX [Concomitant]
     Active Substance: GUAIFENESIN
     Indication: NASAL CONGESTION
     Route: 065

REACTIONS (1)
  - Accidental exposure to product [Unknown]

NARRATIVE: CASE EVENT DATE: 20150226
